FAERS Safety Report 9709641 (Version 1)
Quarter: 2013Q4

REPORT INFORMATION
  Report Type: Spontaneous
  Country: US (occurrence: US)
  Receive Date: 20131126
  Receipt Date: 20131126
  Transmission Date: 20140711
  Serious: No
  Sender: FDA-Public Use
  Company Number: US-009507513-1311USA008381

PATIENT
  Sex: Male

DRUGS (1)
  1. COSOPT PF [Suspect]
     Dosage: 1 DROP IN RIGHT EYE TWICE DAILY
     Route: 047

REACTIONS (3)
  - Drug administration error [Unknown]
  - Product quality issue [Unknown]
  - No adverse event [Unknown]
